FAERS Safety Report 18600802 (Version 1)
Quarter: 2020Q4

REPORT INFORMATION
  Report Type: Spontaneous
  Country: US (occurrence: US)
  Receive Date: 20201210
  Receipt Date: 20201210
  Transmission Date: 20210114
  Serious: Yes (Other)
  Sender: FDA-Public Use
  Company Number: US-PFIZER INC-2020486195

PATIENT
  Age: 62 Year

DRUGS (1)
  1. XANAX [Suspect]
     Active Substance: ALPRAZOLAM
     Dosage: UNK

REACTIONS (6)
  - Panic attack [Unknown]
  - Post-traumatic stress disorder [Unknown]
  - Epilepsy [Unknown]
  - Insomnia [Unknown]
  - Anxiety [Unknown]
  - Hypersensitivity [Unknown]
